FAERS Safety Report 23139584 (Version 1)
Quarter: 2023Q4

REPORT INFORMATION
  Report Type: Spontaneous
  Country: US (occurrence: US)
  Receive Date: 20231102
  Receipt Date: 20231102
  Transmission Date: 20240110
  Serious: No
  Sender: FDA-Public Use
  Company Number: US-BAUSCH-BL-2023-016009

PATIENT
  Age: 71 Year
  Sex: Female
  Weight: 70.824 kg

DRUGS (1)
  1. PLENVU [Suspect]
     Active Substance: ASCORBIC ACID\POLYETHYLENE GLYCOL 3350\POTASSIUM CHLORIDE\SODIUM ASCORBATE\SODIUM CHLORIDE\SODIUM SU
     Indication: Bowel preparation
     Dosage: TOOK 1 DOSE IN EVENING AND 1 DOSE IN NEXT DAY MORNING
     Route: 048
     Dates: start: 20230820, end: 20230821

REACTIONS (4)
  - Hiccups [Unknown]
  - Dehydration [Unknown]
  - Vomiting [Unknown]
  - Dry mouth [Not Recovered/Not Resolved]

NARRATIVE: CASE EVENT DATE: 20230821
